FAERS Safety Report 10443654 (Version 1)
Quarter: 2014Q3

REPORT INFORMATION
  Report Type: Spontaneous
  Country: KR (occurrence: KR)
  Receive Date: 20140910
  Receipt Date: 20140910
  Transmission Date: 20150326
  Serious: Yes (Other)
  Sender: FDA-Public Use
  Company Number: KR-ACCORD-025814

PATIENT
  Age: 45 Year
  Sex: Male

DRUGS (2)
  1. FLUOROURACIL. [Suspect]
     Active Substance: FLUOROURACIL
     Indication: ADENOCARCINOMA OF COLON
     Dosage: DOSE: DAY 1,2 : 400 MG/M^2 + 600 MG/M^2
  2. OXALIPLATIN. [Suspect]
     Active Substance: OXALIPLATIN
     Indication: ADENOCARCINOMA OF COLON
     Dosage: DOSE: DAY 1: 85 MG/M^2

REACTIONS (3)
  - Thrombocytopenia [Unknown]
  - Hepatic fibrosis [Unknown]
  - Splenomegaly [Unknown]
